FAERS Safety Report 8541552-X (Version None)
Quarter: 2012Q3

REPORT INFORMATION
  Report Type: 
  Country: None (occurrence: None)
  Receive Date: 20120726
  Receipt Date: 20120508
  Transmission Date: 20120928
  Serious: No
  Sender: FDA-Public Use
  Company Number: US-MUTUAL PHARMACEUTICAL COMPANY, INC.-CLCY20120080

PATIENT
  Sex: Male

DRUGS (2)
  1. ULORIC [Suspect]
     Indication: GOUT
     Route: 065
  2. COLCRYS [Suspect]
     Indication: GOUT
     Route: 065

REACTIONS (1)
  - RASH [None]
